FAERS Safety Report 18953517 (Version 1)
Quarter: 2021Q1

REPORT INFORMATION
  Report Type: Spontaneous
  Country: US (occurrence: US)
  Receive Date: 20210301
  Receipt Date: 20210301
  Transmission Date: 20210420
  Serious: No
  Sender: FDA-Public Use
  Company Number: None

PATIENT
  Age: 71 Year
  Sex: Female
  Weight: 81.9 kg

DRUGS (15)
  1. CAPECITABINE. [Suspect]
     Active Substance: CAPECITABINE
     Indication: RECTAL CANCER
     Dosage: ?          OTHER FREQUENCY:BID 14/21 DAYS;?
     Route: 048
     Dates: start: 20210108
  2. CLONAZEPAM. [Concomitant]
     Active Substance: CLONAZEPAM
  3. FOLIC ACID. [Concomitant]
     Active Substance: FOLIC ACID
  4. HYDRALAZINE [Concomitant]
     Active Substance: HYDRALAZINE HYDROCHLORIDE
  5. BENAZEPRIL [Concomitant]
     Active Substance: BENAZEPRIL HYDROCHLORIDE
  6. POTASSIUM [Concomitant]
     Active Substance: POTASSIUM
  7. SULFASALAZINE. [Concomitant]
     Active Substance: SULFASALAZINE
  8. DORZOLAMIDE?TIMOLOL [Concomitant]
     Active Substance: DORZOLAMIDE\TIMOLOL
  9. ESTRADIOL. [Concomitant]
     Active Substance: ESTRADIOL
  10. TMASULOSIN [Concomitant]
  11. AMLODIPINE [Concomitant]
     Active Substance: AMLODIPINE BESYLATE
  12. LEVOTHYROXINE. [Concomitant]
     Active Substance: LEVOTHYROXINE
  13. NORCO [Concomitant]
     Active Substance: ACETAMINOPHEN\HYDROCODONE BITARTRATE
  14. STOOL SOFTENER (DOCUSATE) [Concomitant]
     Active Substance: DOCUSATE
  15. LATANOPROST?TIMOLOL [Concomitant]

REACTIONS (1)
  - Abdominal pain [None]

NARRATIVE: CASE EVENT DATE: 20210301
